FAERS Safety Report 17094538 (Version 1)
Quarter: 2019Q4

REPORT INFORMATION
  Report Type: Spontaneous
  Country: SE (occurrence: SE)
  Receive Date: 20191129
  Receipt Date: 20191129
  Transmission Date: 20200122
  Serious: Yes (Hospitalization)
  Sender: FDA-Public Use
  Company Number: SE-ACCORD-162391

PATIENT
  Sex: Female

DRUGS (4)
  1. LERGIGAN (PROMETHAZINE HYDROCHLORIDE) [Suspect]
     Active Substance: PROMETHAZINE HYDROCHLORIDE
     Dosage: 60-70 TABLET
     Route: 048
     Dates: start: 20181031, end: 20181031
  2. QUETIAPINE. [Suspect]
     Active Substance: QUETIAPINE
     Dosage: 8 PIECE, QUETIAPINE 25 MG
     Route: 048
     Dates: start: 20180810, end: 20180810
  3. LERGIGAN (PROMETHAZINE HYDROCHLORIDE) [Suspect]
     Active Substance: PROMETHAZINE HYDROCHLORIDE
     Dosage: 8 PIECE LERGIGAN 25 MG
     Route: 048
     Dates: start: 20180810, end: 20180810
  4. QUETIAPINE. [Suspect]
     Active Substance: QUETIAPINE
     Dosage: 25 TABLET
     Route: 048
     Dates: start: 20181031, end: 20181031

REACTIONS (5)
  - Intentional self-injury [Unknown]
  - Dizziness [Unknown]
  - Tachycardia [Unknown]
  - Intentional overdose [Unknown]
  - Somnolence [Unknown]

NARRATIVE: CASE EVENT DATE: 20180810
